FAERS Safety Report 15907826 (Version 6)
Quarter: 2023Q2

REPORT INFORMATION
  Report Type: Spontaneous
  Country: JP (occurrence: JP)
  Receive Date: 20190204
  Receipt Date: 20230503
  Transmission Date: 20230722
  Serious: Yes (Death, Hospitalization, Other)
  Sender: FDA-Public Use
  Company Number: JP-UNITED THERAPEUTICS-UNT-2017-007040

PATIENT
  Age: 83 Year
  Sex: Female
  Weight: 32.472 kg

DRUGS (16)
  1. REMODULIN [Suspect]
     Active Substance: TREPROSTINIL
     Indication: Pulmonary arterial hypertension
     Dosage: 0.001 ?G/KG, CONTINUING
     Route: 041
     Dates: start: 20170501, end: 201705
  2. REMODULIN [Suspect]
     Active Substance: TREPROSTINIL
     Dosage: 0.005 ?G/KG, CONTINUING
     Route: 041
     Dates: start: 201705, end: 20170507
  3. REMODULIN [Suspect]
     Active Substance: TREPROSTINIL
     Indication: Pulmonary arterial hypertension
     Dosage: UNK, CONTINUING
     Route: 058
     Dates: start: 20170508
  4. REMODULIN [Suspect]
     Active Substance: TREPROSTINIL
     Dosage: 0.008 ?G/KG, CONTINUING
     Route: 058
  5. REMODULIN [Suspect]
     Active Substance: TREPROSTINIL
     Dosage: 0.0155 ?G/KG, CONTINUING
     Route: 058
  6. REMODULIN [Suspect]
     Active Substance: TREPROSTINIL
     Dosage: UNK, CONTINUING (10 MCL/H)
     Route: 058
  7. REMODULIN [Suspect]
     Active Substance: TREPROSTINIL
     Dosage: 0.020 ?G/KG, CONTINUING
     Route: 058
  8. REMODULIN [Suspect]
     Active Substance: TREPROSTINIL
     Dosage: 0.031 ?G/KG, CONTINUING
     Route: 058
     Dates: end: 20190118
  9. ADEMPAS [Concomitant]
     Active Substance: RIOCIGUAT
     Indication: Pulmonary arterial hypertension
     Dosage: UNK
     Route: 048
     Dates: start: 201606, end: 20190117
  10. ELIQUIS [Concomitant]
     Active Substance: APIXABAN
     Indication: Pulmonary arterial hypertension
     Dosage: UNK
     Route: 048
     Dates: start: 201608, end: 20170906
  11. AMBRISENTAN [Concomitant]
     Active Substance: AMBRISENTAN
     Indication: Pulmonary arterial hypertension
     Dosage: UNK
     Route: 048
     Dates: start: 201612, end: 20190117
  12. PITAVASTATIN CALCIUM [Concomitant]
     Active Substance: PITAVASTATIN CALCIUM
     Indication: Product used for unknown indication
     Dosage: UNK
     Route: 048
     Dates: end: 20181219
  13. RABEPRAZOLE SODIUM [Concomitant]
     Active Substance: RABEPRAZOLE SODIUM
     Indication: Product used for unknown indication
     Dosage: UNK
     Route: 048
     Dates: end: 20181219
  14. AZOSEMIDE [Concomitant]
     Active Substance: AZOSEMIDE
     Indication: Pulmonary arterial hypertension
     Dosage: UNK
     Route: 048
     Dates: end: 20181219
  15. ALLELOCK [Concomitant]
     Active Substance: OLOPATADINE HYDROCHLORIDE
     Indication: Product used for unknown indication
     Dosage: UNK
     Route: 048
     Dates: end: 20181219
  16. AMBROXOL HYDROCHLORIDE [Concomitant]
     Active Substance: AMBROXOL HYDROCHLORIDE
     Indication: Product used for unknown indication
     Dosage: UNK
     Route: 048
     Dates: end: 20181219

REACTIONS (18)
  - Cardiac failure [Fatal]
  - Pneumonia [Fatal]
  - Dyspnoea [Recovered/Resolved]
  - Melaena [Recovering/Resolving]
  - Erythema [Recovering/Resolving]
  - Nasal congestion [Recovering/Resolving]
  - Injection site induration [Not Recovered/Not Resolved]
  - Dizziness postural [Recovering/Resolving]
  - Injection site pain [Recovering/Resolving]
  - Injection site phlebitis [Unknown]
  - Pyrexia [Unknown]
  - Injection site warmth [Unknown]
  - Injection site abscess [Unknown]
  - Malaise [Recovering/Resolving]
  - Diarrhoea [Unknown]
  - Jaw disorder [Unknown]
  - Headache [Unknown]
  - Hypotension [Unknown]

NARRATIVE: CASE EVENT DATE: 20170428
